FAERS Safety Report 4954520-1 (Version None)
Quarter: 2006Q1

REPORT INFORMATION
  Report Type: 
  Country: None (occurrence: None)
  Receive Date: 20060322
  Receipt Date: 20060310
  Transmission Date: 20060701
  Serious: Yes (Death, Other)
  Sender: FDA-Public Use
  Company Number: 2006JP000538

PATIENT
  Age: 57 Year
  Sex: Male

DRUGS (6)
  1. PROGRAF [Suspect]
     Indication: BONE MARROW TRANSPLANT
  2. METHOTREXATE [Concomitant]
  3. FLUDARABINE PHOSPHATE [Concomitant]
  4. BUSULFAN (BUSULFAN) [Concomitant]
  5. ANTITHYMOCYTE IMMUNOGLOBULIN (ANTITHYMOCYTE IMMUNOGLOBULIN) [Concomitant]
  6. METHYLPREDNISOLONE [Concomitant]

REACTIONS (8)
  - CEREBRAL HAEMORRHAGE [None]
  - DIARRHOEA [None]
  - GRAFT VERSUS HOST DISEASE [None]
  - HEPATIC FUNCTION ABNORMAL [None]
  - HISTIOCYTOSIS HAEMATOPHAGIC [None]
  - PNEUMONIA STAPHYLOCOCCAL [None]
  - RASH GENERALISED [None]
  - SERUM FERRITIN INCREASED [None]
